FAERS Safety Report 13144004 (Version 1)
Quarter: 2017Q1

REPORT INFORMATION
  Report Type: Spontaneous
  Country: US (occurrence: US)
  Receive Date: 20170124
  Receipt Date: 20170124
  Transmission Date: 20170428
  Serious: Yes (Disabling)
  Sender: FDA-Public Use
  Company Number: None

PATIENT
  Age: 66 Year
  Sex: Female
  Weight: 68.04 kg

DRUGS (12)
  1. TACROLIMUS. [Suspect]
     Active Substance: TACROLIMUS
     Indication: LIP DRY
     Dosage: QUANITY - APPLY LOCALLY
     Route: 061
     Dates: start: 20170110, end: 20170114
  2. TACROLIMUS. [Suspect]
     Active Substance: TACROLIMUS
     Indication: PRECANCEROUS SKIN LESION
     Dosage: QUANITY - APPLY LOCALLY
     Route: 061
     Dates: start: 20170110, end: 20170114
  3. NAPROXEN SODIUM. [Concomitant]
     Active Substance: NAPROXEN SODIUM
  4. TYLENOL [Concomitant]
     Active Substance: ACETAMINOPHEN
  5. LIPITOR [Concomitant]
     Active Substance: ATORVASTATIN CALCIUM
  6. HYDROXYCHLOROQUINE [Concomitant]
     Active Substance: HYDROXYCHLOROQUINE
  7. TACROLIMUS. [Suspect]
     Active Substance: TACROLIMUS
     Indication: SKIN CANCER
     Dosage: QUANITY - APPLY LOCALLY
     Route: 061
     Dates: start: 20170110, end: 20170114
  8. ASPIRIN. [Concomitant]
     Active Substance: ASPIRIN
  9. VITAMIN B12 [Concomitant]
     Active Substance: CYANOCOBALAMIN
  10. DEXAMETHASONE. [Concomitant]
     Active Substance: DEXAMETHASONE
  11. HYDROCHLOROTHIAZIDE. [Concomitant]
     Active Substance: HYDROCHLOROTHIAZIDE
  12. CALCIUM WITH D [Concomitant]
     Active Substance: CALCIUM\VITAMIN D

REACTIONS (4)
  - Hypoaesthesia [None]
  - Paraesthesia [None]
  - Hypoaesthesia oral [None]
  - Paraesthesia oral [None]

NARRATIVE: CASE EVENT DATE: 20170114
